FAERS Safety Report 4462093-5 (Version None)
Quarter: 2004Q3

REPORT INFORMATION
  Report Type: 
  Country: None (occurrence: None)
  Receive Date: 20040927
  Receipt Date: 20040927
  Transmission Date: 20050211
  Serious: Yes (Hospitalization)
  Sender: FDA-Public Use
  Company Number: None

PATIENT
  Age: 54 Year
  Sex: Male
  Weight: 102.9665 kg

DRUGS (13)
  1. TAXOTERE [Suspect]
     Indication: NON-SMALL CELL LUNG CANCER
     Dosage: 176 MG IV X 1
     Route: 042
     Dates: start: 20040908
  2. CARBOPLATIN [Suspect]
     Dosage: 889 IV X 1
     Route: 042
     Dates: start: 20040908
  3. DOXAZOSIN [Concomitant]
  4. NEXIUM [Concomitant]
  5. ATIVAN [Concomitant]
  6. SYNTHROID [Concomitant]
  7. LOTENSIN [Concomitant]
  8. AMBIEN [Concomitant]
  9. COMBIVENT [Concomitant]
  10. ADVAIR DISKUS 100/50 [Concomitant]
  11. DULCOLAX [Concomitant]
  12. OXYCODONE HCL [Concomitant]
  13. MORPHINE [Concomitant]

REACTIONS (3)
  - DEEP VEIN THROMBOSIS [None]
  - PHARYNGOLARYNGEAL PAIN [None]
  - PULMONARY EMBOLISM [None]
